FAERS Safety Report 19265057 (Version 1)
Quarter: 2021Q2

REPORT INFORMATION
  Report Type: Report from Study
  Country: US (occurrence: US)
  Receive Date: 20210517
  Receipt Date: 20210517
  Transmission Date: 20210717
  Serious: Yes (Hospitalization)
  Sender: FDA-Public Use
  Company Number: US-VERTEX PHARMACEUTICALS-2021-007512

PATIENT
  Age: 38 Year
  Sex: Female

DRUGS (5)
  1. VITAMIN D2 [Concomitant]
     Active Substance: ERGOCALCIFEROL
  2. PULMOZYME [Concomitant]
     Active Substance: DORNASE ALFA
  3. SODIUM CHLORIDE. [Concomitant]
     Active Substance: SODIUM CHLORIDE
     Dosage: 7%
  4. SYMDEKO [Suspect]
     Active Substance: IVACAFTOR\TEZACAFTOR
     Indication: CYSTIC FIBROSIS
     Dosage: 1 TABLET, BID
     Route: 048
     Dates: start: 20180406
  5. LEVALBUTEROL [LEVOSALBUTAMOL] [Concomitant]
     Active Substance: LEVALBUTEROL
     Dosage: NEBULISER SOLUTION

REACTIONS (1)
  - Cystic fibrosis respiratory infection suppression [Recovered/Resolved]

NARRATIVE: CASE EVENT DATE: 20210414
